FAERS Safety Report 11999069 (Version 1)
Quarter: 2016Q1

REPORT INFORMATION
  Report Type: Spontaneous
  Country: US (occurrence: None)
  Receive Date: 20160202
  Receipt Date: 20160202
  Transmission Date: 20160526
  Serious: Yes (Other)
  Sender: FDA-Public Use
  Company Number: None

PATIENT
  Age: 77 Year
  Sex: Male

DRUGS (9)
  1. FOLIC ACID. [Concomitant]
     Active Substance: FOLIC ACID
  2. PLAVIX [Concomitant]
     Active Substance: CLOPIDOGREL BISULFATE
  3. PRALUENT [Suspect]
     Active Substance: ALIROCUMAB
     Indication: DRUG INTOLERANCE
     Dosage: 2 PENS
     Route: 058
     Dates: start: 20160126
  4. FISH OIL [Concomitant]
     Active Substance: FISH OIL
  5. PRALUENT [Suspect]
     Active Substance: ALIROCUMAB
     Indication: ARTERIOSCLEROSIS
     Dosage: 2 PENS
     Route: 058
     Dates: start: 20160126
  6. ASPIRIN. [Concomitant]
     Active Substance: ASPIRIN
  7. METHOTREXATE [Concomitant]
     Active Substance: METHOTREXATE
  8. CALCIUM CITRATE [Concomitant]
     Active Substance: CALCIUM CITRATE
  9. TOPROL XL [Concomitant]
     Active Substance: METOPROLOL SUCCINATE

REACTIONS (3)
  - Hyperkeratosis [None]
  - Skin disorder [None]
  - Skin atrophy [None]

NARRATIVE: CASE EVENT DATE: 20160201
